FAERS Safety Report 9689084 (Version 2)
Quarter: 2013Q4

REPORT INFORMATION
  Report Type: Spontaneous
  Country: US (occurrence: US)
  Receive Date: 20131114
  Receipt Date: 20131204
  Transmission Date: 20140711
  Serious: No
  Sender: FDA-Public Use
  Company Number: US-009507513-1311USA005772

PATIENT
  Age: 47 Year
  Sex: Female
  Weight: 56.69 kg

DRUGS (3)
  1. OXYTROL FOR WOMEN [Suspect]
     Indication: HYPERTONIC BLADDER
     Dosage: UNK, UNKNOWN
     Route: 062
     Dates: start: 201310, end: 201311
  2. OXYTROL FOR WOMEN [Suspect]
     Indication: POLLAKIURIA
  3. LEVOXYL [Concomitant]
     Indication: THYROID CANCER
     Dosage: UNK, UNKNOWN
     Route: 048

REACTIONS (1)
  - Drug ineffective [Unknown]
